FAERS Safety Report 14498364 (Version 1)
Quarter: 2018Q1

REPORT INFORMATION
  Report Type: Spontaneous
  Country: US (occurrence: US)
  Receive Date: 20180206
  Receipt Date: 20180206
  Transmission Date: 20180509
  Serious: Yes (Disabling, Congenital Anomaly, Other)
  Sender: FDA-Public Use
  Company Number: None

PATIENT
  Age: 34 Year
  Sex: Female
  Weight: 84.15 kg

DRUGS (4)
  1. VITAMIN D [Concomitant]
     Active Substance: CHOLECALCIFEROL
  2. CIPROFLOXACIN. [Suspect]
     Active Substance: CIPROFLOXACIN
     Indication: NEPHROLITHIASIS
     Dosage: ?          QUANTITY:1 TABLET(S);?
     Route: 048
     Dates: start: 20180115, end: 20180117
  3. CIPROFLOXACIN. [Suspect]
     Active Substance: CIPROFLOXACIN
     Indication: INFECTION
     Dosage: ?          QUANTITY:1 TABLET(S);?
     Route: 048
     Dates: start: 20180115, end: 20180117
  4. IBUPROFEN. [Concomitant]
     Active Substance: IBUPROFEN

REACTIONS (14)
  - Congenital anomaly [None]
  - Headache [None]
  - Musculoskeletal disorder [None]
  - Abdominal pain [None]
  - Emotional distress [None]
  - Maternal exposure during pregnancy [None]
  - Suicidal ideation [None]
  - Gallbladder disorder [None]
  - Depression [None]
  - Spinal pain [None]
  - Neck pain [None]
  - Anxiety [None]
  - Quality of life decreased [None]
  - Musculoskeletal pain [None]

NARRATIVE: CASE EVENT DATE: 20180115
